FAERS Safety Report 18394723 (Version 2)
Quarter: 2020Q4

REPORT INFORMATION
  Report Type: Spontaneous
  Country: FR (occurrence: FR)
  Receive Date: 20201016
  Receipt Date: 20201023
  Transmission Date: 20210114
  Serious: Yes (Other)
  Sender: FDA-Public Use
  Company Number: FR-ALLERGAN-2037361US

PATIENT
  Sex: Male
  Weight: 80 kg

DRUGS (3)
  1. REFRESH CELLUVISC [Suspect]
     Active Substance: CARBOXYMETHYLCELLULOSE SODIUM
     Indication: PRODUCT USED FOR UNKNOWN INDICATION
     Dosage: 1 GTT, BID
     Route: 047
     Dates: start: 20200907, end: 20200916
  2. MONOPROST [Concomitant]
     Active Substance: LATANOPROST
  3. NAABAK [Concomitant]
     Dosage: UNK
     Route: 047

REACTIONS (6)
  - Thermal burns of eye [Recovering/Resolving]
  - Corneal abrasion [Recovering/Resolving]
  - Suspected product contamination [Unknown]
  - Wrong technique in product usage process [Unknown]
  - Product storage error [Unknown]
  - Poor quality product administered [Unknown]

NARRATIVE: CASE EVENT DATE: 20200915
